FAERS Safety Report 16593890 (Version 1)
Quarter: 2019Q3

REPORT INFORMATION
  Report Type: Other
  Country: US (occurrence: US)
  Receive Date: 20190718
  Receipt Date: 20190718
  Transmission Date: 20191004
  Serious: No
  Sender: FDA-Public Use
  Company Number: US-SWEDISH ORPHAN BIOVITRUM-2018US1507

PATIENT
  Sex: Female

DRUGS (3)
  1. CORTEXIN [Concomitant]
     Active Substance: SUS SCROFA CEREBRAL CORTEX
     Dosage: TAKES IT DAILY
  2. KINERET [Suspect]
     Active Substance: ANAKINRA
     Route: 058
     Dates: start: 20181121
  3. KINERET [Suspect]
     Active Substance: ANAKINRA
     Dates: start: 2018, end: 2018

REACTIONS (2)
  - Condition aggravated [Unknown]
  - Headache [Unknown]

NARRATIVE: CASE EVENT DATE: 2018
